FAERS Safety Report 8144699-5 (Version None)
Quarter: 2012Q1

REPORT INFORMATION
  Report Type: 
  Country: None (occurrence: None)
  Receive Date: 20120217
  Receipt Date: 20120213
  Transmission Date: 20120608
  Serious: Yes (Other)
  Sender: FDA-Public Use
  Company Number: US-VERTEX PHARMACEUTICALS INC.-AE-2012-002244

PATIENT
  Sex: Male

DRUGS (3)
  1. PEGASYS [Concomitant]
     Indication: HEPATITIS C
     Route: 058
     Dates: start: 20111208
  2. INCIVEK [Suspect]
     Indication: HEPATITIS C
     Route: 048
     Dates: start: 20111208
  3. RIBAVIRIN [Concomitant]
     Indication: HEPATITIS C
     Route: 048
     Dates: start: 20111208

REACTIONS (7)
  - NAUSEA [None]
  - CONFUSIONAL STATE [None]
  - ROAD TRAFFIC ACCIDENT [None]
  - FATIGUE [None]
  - BRADYPHRENIA [None]
  - VOMITING [None]
  - AMMONIA INCREASED [None]
